FAERS Safety Report 9632515 (Version 1)
Quarter: 2013Q4

REPORT INFORMATION
  Report Type: Spontaneous
  Country: US (occurrence: US)
  Receive Date: 20131018
  Receipt Date: 20131018
  Transmission Date: 20140711
  Serious: Yes (Other)
  Sender: FDA-Public Use
  Company Number: US-BRISTOL-MYERS SQUIBB COMPANY-19518927

PATIENT
  Sex: 0

DRUGS (1)
  1. ABILIFY [Suspect]

REACTIONS (2)
  - Upper limb fracture [Unknown]
  - Fall [Unknown]
